FAERS Safety Report 13291938 (Version 1)
Quarter: 2017Q1

REPORT INFORMATION
  Report Type: Spontaneous
  Country: US (occurrence: US)
  Receive Date: 20170302
  Receipt Date: 20170302
  Transmission Date: 20170428
  Serious: Yes (Hospitalization)
  Sender: FDA-Public Use
  Company Number: None

PATIENT
  Age: 67 Year
  Sex: Male
  Weight: 69.3 kg

DRUGS (2)
  1. BUPRENORPHINE/NALOXONE [Suspect]
     Active Substance: BUPRENORPHINE\NALOXONE
     Indication: DRUG DEPENDENCE
     Dosage: 1 TAB AM PO
     Route: 048
     Dates: start: 20131205
  2. BUPRENORPHINE/NALOXONE [Suspect]
     Active Substance: BUPRENORPHINE\NALOXONE
     Indication: PAIN
     Dosage: 1 TAB AM PO
     Route: 048
     Dates: start: 20131205

REACTIONS (9)
  - Sedation [None]
  - Hypercapnia [None]
  - Respiratory failure [None]
  - Mental status changes [None]
  - Overdose [None]
  - Pain [None]
  - Confusional state [None]
  - Toxicity to various agents [None]
  - Alcoholic [None]

NARRATIVE: CASE EVENT DATE: 20170209
